FAERS Safety Report 17499782 (Version 2)
Quarter: 2020Q1

REPORT INFORMATION
  Report Type: Spontaneous
  Country: JP (occurrence: JP)
  Receive Date: 20200305
  Receipt Date: 20200320
  Transmission Date: 20200409
  Serious: Yes (Other)
  Sender: FDA-Public Use
  Company Number: JP-ABBVIE-20K-087-3303738-00

PATIENT
  Age: 60 Year
  Sex: Male

DRUGS (6)
  1. KALETRA [Suspect]
     Active Substance: LOPINAVIR\RITONAVIR
     Indication: CORONA VIRUS INFECTION
  2. KALETRA [Suspect]
     Active Substance: LOPINAVIR\RITONAVIR
     Indication: PNEUMONIA VIRAL
     Route: 048
  3. CEFTRIAXONE SODIUM HYDRATE [Concomitant]
     Active Substance: CEFTRIAXONE SODIUM
     Indication: PNEUMONIA VIRAL
  4. CEFTRIAXONE SODIUM HYDRATE [Concomitant]
     Active Substance: CEFTRIAXONE SODIUM
     Indication: CORONA VIRUS INFECTION
  5. KALETRA [Suspect]
     Active Substance: LOPINAVIR\RITONAVIR
     Indication: CORONA VIRUS INFECTION
  6. KALETRA [Suspect]
     Active Substance: LOPINAVIR\RITONAVIR
     Indication: PNEUMONIA VIRAL
     Route: 048

REACTIONS (6)
  - Off label use [Unknown]
  - Corona virus infection [Unknown]
  - Endotracheal intubation [Unknown]
  - Respiratory disorder [Unknown]
  - Vomiting [Unknown]
  - Pneumonia viral [Unknown]
